FAERS Safety Report 12574662 (Version 1)
Quarter: 2016Q3

REPORT INFORMATION
  Report Type: Spontaneous
  Country: FR (occurrence: FR)
  Receive Date: 20160720
  Receipt Date: 20160720
  Transmission Date: 20161109
  Serious: Yes (Hospitalization, Other)
  Sender: FDA-Public Use
  Company Number: FR-PFIZER INC-2016339058

PATIENT
  Age: 43 Year
  Sex: Male

DRUGS (10)
  1. CIFLOX /00697201/ [Suspect]
     Active Substance: CIPROFLOXACIN
     Indication: OSTEITIS
     Dosage: 750 MG, 2X/DAY (IN THE MORNING AND IN THE EVENING)
     Route: 048
     Dates: start: 201605, end: 201606
  2. KEPPRA [Concomitant]
     Active Substance: LEVETIRACETAM
     Dosage: 750 MG, 2X/DAY
     Dates: end: 201606
  3. CIFLOX /00697201/ [Suspect]
     Active Substance: CIPROFLOXACIN
     Dosage: 500 MG, 2X/DAY
     Route: 048
     Dates: start: 20160613, end: 20160613
  4. KEPPRA [Concomitant]
     Active Substance: LEVETIRACETAM
     Dosage: 1000 MG TWICE DAILY
     Dates: start: 20160613
  5. DALACINE [Suspect]
     Active Substance: CLINDAMYCIN HYDROCHLORIDE
     Indication: OSTEITIS
     Dosage: 300 MG, 2X/DAY (IN THE MORNING AND IN THE EVENING)
     Route: 048
     Dates: start: 201605
  6. LEDERFOLINE [Concomitant]
     Active Substance: LEUCOVORIN CALCIUM
  7. BACTRIM [Suspect]
     Active Substance: SULFAMETHOXAZOLE\TRIMETHOPRIM
     Indication: OSTEITIS
     Dosage: 2 DF, 2X/DAY (IN THE MORNING AND IN THE EVENING)
     Route: 048
     Dates: start: 201605
  8. NORSET [Concomitant]
     Active Substance: MIRTAZAPINE
  9. FORLAX [Concomitant]
     Active Substance: POLYETHYLENE GLYCOL 4000
  10. DOLIPRANE [Concomitant]
     Active Substance: ACETAMINOPHEN
     Dosage: AS NEEDED

REACTIONS (1)
  - Status epilepticus [Recovered/Resolved]

NARRATIVE: CASE EVENT DATE: 20160612
